FAERS Safety Report 9471730 (Version 1)
Quarter: 2013Q3

REPORT INFORMATION
  Report Type: Spontaneous
  Country: AU (occurrence: None)
  Receive Date: 20130819
  Receipt Date: 20130819
  Transmission Date: 20140515
  Serious: Yes (Other)
  Sender: FDA-Public Use
  Company Number: SYM-2013-08559

PATIENT
  Age: 58 Year
  Sex: Male

DRUGS (5)
  1. FLUOROURACIL (FLUOROURACIL) (FLUOROURACIL) [Suspect]
     Indication: RECTAL CANCER STAGE III
  2. IRINOTECAN [Suspect]
     Indication: RECTAL CANCER STAGE III
  3. DEXAMETHASONE (DEXAMETHASONE) (DEXAMETHASONE) [Suspect]
     Indication: RECTAL CANCER STAGE III
     Route: 048
  4. BEVACIZUMAB [Suspect]
     Indication: RECTAL CANCER STAGE III
  5. THERAPEUTIC RADIOPHARMACEUTICALS (THERAPEUTIC RADIOPHARMACEUTICALS) [Suspect]

REACTIONS (1)
  - Genital herpes zoster [None]
